FAERS Safety Report 21050578 (Version 1)
Quarter: 2022Q3

REPORT INFORMATION
  Report Type: Spontaneous
  Country: CN (occurrence: None)
  Receive Date: 20220707
  Receipt Date: 20220707
  Transmission Date: 20221026
  Serious: Yes (Other)
  Sender: FDA-Public Use
  Company Number: CN-ROCHE-3126425

PATIENT
  Age: 39 Year
  Sex: Female

DRUGS (21)
  1. HERCEPTIN [Suspect]
     Active Substance: TRASTUZUMAB
     Indication: Invasive breast carcinoma
     Dosage: TREATMENT ON 14-JUL-2021, 06-AUG-2021, 27-AUG-2021, 17-SEP-2021, 08-OCT-2021,?29-OCT-2021 FOR 6 CYCL
     Route: 041
     Dates: start: 20210714
  2. HERCEPTIN [Suspect]
     Active Substance: TRASTUZUMAB
     Dosage: DUAL TARGET + RADIOTHERAPY + ENDOCRINE THERAPY
     Route: 041
     Dates: start: 20210806
  3. HERCEPTIN [Suspect]
     Active Substance: TRASTUZUMAB
     Dosage: TREATMENT ON 14-JUL-2021, 06-AUG-2021, 27-AUG-2021, 17-SEP-2021, 08-OCT-2021, 29-OCT-2021 FOR 6 CYCL
     Route: 041
     Dates: start: 20210827
  4. HERCEPTIN [Suspect]
     Active Substance: TRASTUZUMAB
     Dosage: DUAL TARGET + RADIOTHERAPY + ENDOCRINE THERAPY
     Route: 041
     Dates: start: 20210917
  5. HERCEPTIN [Suspect]
     Active Substance: TRASTUZUMAB
     Route: 041
     Dates: start: 20211008
  6. HERCEPTIN [Suspect]
     Active Substance: TRASTUZUMAB
     Route: 041
     Dates: start: 20211029
  7. PERJETA [Suspect]
     Active Substance: PERTUZUMAB
     Indication: Invasive breast carcinoma
     Dosage: DUAL TARGET + RADIOTHERAPY + ENDOCRINE THERAPY
     Route: 065
     Dates: start: 20210714
  8. PERJETA [Suspect]
     Active Substance: PERTUZUMAB
     Route: 065
     Dates: start: 20210806
  9. PERJETA [Suspect]
     Active Substance: PERTUZUMAB
     Route: 065
     Dates: start: 20210827
  10. PERJETA [Suspect]
     Active Substance: PERTUZUMAB
     Route: 065
     Dates: start: 20210917
  11. PERJETA [Suspect]
     Active Substance: PERTUZUMAB
     Route: 065
     Dates: start: 20211008
  12. PERJETA [Suspect]
     Active Substance: PERTUZUMAB
     Route: 065
     Dates: start: 20211029
  13. DOCETAXEL [Concomitant]
     Active Substance: DOCETAXEL
     Indication: Invasive breast carcinoma
     Dates: start: 20210714
  14. DOCETAXEL [Concomitant]
     Active Substance: DOCETAXEL
     Dates: start: 20210806
  15. DOCETAXEL [Concomitant]
     Active Substance: DOCETAXEL
     Dates: start: 20210827
  16. DOCETAXEL [Concomitant]
     Active Substance: DOCETAXEL
     Dates: start: 20210917
  17. DOCETAXEL [Concomitant]
     Active Substance: DOCETAXEL
     Dates: start: 20211008
  18. DOCETAXEL [Concomitant]
     Active Substance: DOCETAXEL
     Dates: start: 20211029
  19. CARBOPLATIN [Concomitant]
     Active Substance: CARBOPLATIN
     Indication: Invasive breast carcinoma
     Route: 065
  20. PEGYLATED RECOMBINANT HUMAN GRANULOCYTE COLONY-STIMULATING FACTOR [Concomitant]
     Indication: Invasive breast carcinoma
     Route: 065
  21. TAMOXIFEN [Concomitant]
     Active Substance: TAMOXIFEN
     Indication: Invasive breast carcinoma
     Route: 065

REACTIONS (3)
  - Pyrexia [Unknown]
  - Diarrhoea [Unknown]
  - Myelosuppression [Unknown]

NARRATIVE: CASE EVENT DATE: 20210721
